FAERS Safety Report 16264027 (Version 4)
Quarter: 2024Q2

REPORT INFORMATION
  Report Type: Other
  Country: BG (occurrence: None)
  Receive Date: 20190502
  Receipt Date: 20240401
  Transmission Date: 20240716
  Serious: Yes (Hospitalization)
  Sender: FDA-Public Use
  Company Number: BG-ROCHE-2308237

PATIENT
  Age: 73 Year
  Sex: Female
  Weight: 59 kg

DRUGS (18)
  1. HERCEPTIN [Suspect]
     Active Substance: TRASTUZUMAB
     Indication: HER2 positive breast cancer
     Dosage: ON 11/FEB/2019, RECEIVED MOST RECENT DOSE OF TRASTUZUMAB.
     Route: 041
     Dates: start: 20180720
  2. XELODA [Suspect]
     Active Substance: CAPECITABINE
     Indication: HER2 positive breast cancer
     Dosage: ON 11/FEB/2019, RECEIVED MOST RECENT DOSE OF CAPECITABINE.
     Route: 048
     Dates: start: 20181213
  3. TAXOTERE [Suspect]
     Active Substance: DOCETAXEL
     Indication: HER2 positive breast cancer
     Dosage: ON 14/NOV/2018, RECEIVED MOST RECENT DOSE OF DOCETAXEL.
     Route: 042
     Dates: start: 20180720
  4. BUPRENORPHINE [Concomitant]
     Active Substance: BUPRENORPHINE
     Indication: Pain
     Dosage: ONGOING = CHECKED
     Dates: start: 20190305, end: 20191120
  5. DEXAMETHASONE [Concomitant]
     Active Substance: DEXAMETHASONE
     Indication: Pain
     Dosage: ONGOING = NOT CHECKED
     Dates: end: 20190315
  6. DEXKETOPROFEN [Concomitant]
     Active Substance: DEXKETOPROFEN
     Indication: Pain
     Dosage: ONGOING = NOT CHECKED
     Dates: start: 20190305, end: 20190315
  7. METOCLOPRAMIDE HYDROCHLORIDE [Concomitant]
     Active Substance: METOCLOPRAMIDE HYDROCHLORIDE
     Indication: Pain
     Dosage: ONGOING = NOT CHECKED
     Dates: start: 20190305, end: 20190315
  8. NEURONTIN [Concomitant]
     Active Substance: GABAPENTIN
     Indication: Pain
     Dosage: ONGOING = NOT CHECKED
     Dates: start: 20190305, end: 20190315
  9. MORFIN [Concomitant]
     Indication: Pain
     Dosage: ONGOING = NOT CHECKED
     Dates: start: 20190305, end: 20190315
  10. MANNITOL [Concomitant]
     Active Substance: MANNITOL
     Indication: Pain
     Dosage: ONGOING = NOT CHECKED
     Dates: start: 20190305, end: 20190315
  11. ASPIRIN [Concomitant]
     Active Substance: ASPIRIN
     Dosage: ONGOING = CHECKED
     Dates: start: 20140615, end: 20191227
  12. PREDNISOLONE [Concomitant]
     Active Substance: PREDNISOLONE
     Dosage: ONGOING = CHECKED
     Dates: start: 20000615, end: 20191227
  13. TRAMADOL [Concomitant]
     Active Substance: TRAMADOL\TRAMADOL HYDROCHLORIDE
     Dosage: ONGOING = NOT CHECKED
     Dates: start: 20180405, end: 20190305
  14. METRONIDAZOLE [Concomitant]
     Active Substance: METRONIDAZOLE
     Indication: Inguinal hernia
     Dosage: ONGOING = NOT CHECKED
     Dates: start: 20190211, end: 20190213
  15. NADROPARIN CALCIUM [Concomitant]
     Active Substance: NADROPARIN CALCIUM
     Indication: Inguinal hernia
     Dosage: ONGOING = NOT CHECKED
     Dates: start: 20190211, end: 20190213
  16. BIOPRAZOLE [Concomitant]
     Indication: Pain
     Dates: start: 20190305, end: 20190315
  17. DORMICUM [Concomitant]
     Indication: Pain
     Dates: start: 20190305, end: 20190315
  18. OLSART (BULGARIA) [Concomitant]
     Dates: start: 20140615, end: 20191227

REACTIONS (1)
  - Inguinal hernia [Recovered/Resolved]

NARRATIVE: CASE EVENT DATE: 20190211
